FAERS Safety Report 24164957 (Version 2)
Quarter: 2024Q4

REPORT INFORMATION
  Report Type: Spontaneous
  Country: US (occurrence: US)
  Receive Date: 20240802
  Receipt Date: 20241230
  Transmission Date: 20250114
  Serious: No
  Sender: SANOFI AVENTIS
  Company Number: US-SA-SAC20240729001605

PATIENT
  Age: 16 Year
  Sex: Female
  Weight: 86 kg

DRUGS (5)
  1. DUPIXENT [Suspect]
     Active Substance: DUPILUMAB
     Indication: Dermatitis atopic
     Dosage: 600 MG, 1X
     Route: 058
     Dates: start: 20240705, end: 20240705
  2. DUPIXENT [Suspect]
     Active Substance: DUPILUMAB
     Indication: Eczema
     Dosage: 300 MG, QOW
     Route: 058
     Dates: start: 20240726, end: 2024
  3. DUPIXENT [Suspect]
     Active Substance: DUPILUMAB
     Dosage: 300 MG, QOW
     Route: 058
     Dates: start: 2024
  4. IBUPROFEN [Concomitant]
     Active Substance: IBUPROFEN
     Dosage: UNK
  5. TYLENOL [Concomitant]
     Active Substance: ACETAMINOPHEN
     Dosage: UNK

REACTIONS (7)
  - Injection site urticaria [Recovered/Resolved]
  - Skin swelling [Recovering/Resolving]
  - Feeling abnormal [Recovering/Resolving]
  - Rash erythematous [Recovering/Resolving]
  - Rash pruritic [Recovering/Resolving]
  - Contusion [Unknown]
  - Rash [Unknown]

NARRATIVE: CASE EVENT DATE: 20240101
